FAERS Safety Report 8078381-X (Version None)
Quarter: 2012Q1

REPORT INFORMATION
  Report Type: 
  Country: None (occurrence: None)
  Receive Date: 20120127
  Receipt Date: 20110301
  Transmission Date: 20120608
  Serious: No
  Sender: FDA-Public Use
  Company Number: US-ABBOTT-10P-163-0642835-00

PATIENT
  Sex: Male
  Weight: 3.36 kg

DRUGS (2)
  1. VITAMIN WITH IRON DROPS [Concomitant]
     Indication: VITAMIN SUPPLEMENTATION
     Route: 048
     Dates: start: 20101201, end: 20101201
  2. HUMIRA [Suspect]
     Indication: MATERNAL EXPOSURE TIMING UNSPECIFIED
     Route: 064

REACTIONS (7)
  - INFANTILE SPITTING UP [None]
  - FOETAL EXPOSURE DURING PREGNANCY [None]
  - DIARRHOEA [None]
  - MILK ALLERGY [None]
  - IRRITABILITY [None]
  - NASAL CONGESTION [None]
  - FLATULENCE [None]
